FAERS Safety Report 5421471-8 (Version None)
Quarter: 2007Q3

REPORT INFORMATION
  Report Type: 
  Country: None (occurrence: None)
  Receive Date: 20070725
  Receipt Date: 20060828
  Transmission Date: 20080115
  Serious: Yes (Death, Other)
  Sender: FDA-Public Use
  Company Number: USA-2006-0025085

PATIENT
  Age: 26 Year
  Sex: Male
  Weight: 68 kg

DRUGS (5)
  1. MORPHINE SULFATE [Suspect]
     Indication: DRUG ABUSER
  2. OXYCODONE HCL [Suspect]
     Indication: DRUG ABUSER
  3. COCAINE (COCAINE) [Suspect]
     Indication: DRUG ABUSER
  4. DIPHENHYDRAMINE HCL [Suspect]
     Indication: DRUG ABUSER
  5. OXYMORPHONE (OXYMORPHONE) [Suspect]
     Indication: DRUG ABUSER

REACTIONS (3)
  - COMA [None]
  - MULTIPLE DRUG OVERDOSE ACCIDENTAL [None]
  - SUBSTANCE ABUSE [None]
